FAERS Safety Report 12308080 (Version 2)
Quarter: 2016Q2

REPORT INFORMATION
  Report Type: Spontaneous
  Country: GB (occurrence: GB)
  Receive Date: 20160426
  Receipt Date: 20160518
  Transmission Date: 20160815
  Serious: Yes (Death, Other)
  Sender: FDA-Public Use
  Company Number: GB-INCYTE CORPORATION-2016IN002296

PATIENT
  Sex: Female

DRUGS (1)
  1. JAKAFI [Suspect]
     Active Substance: RUXOLITINIB
     Indication: MYELOFIBROSIS
     Dosage: UNKNOWN
     Route: 065

REACTIONS (4)
  - Nervous system disorder [Unknown]
  - Blindness unilateral [Unknown]
  - Hemiplegia [Unknown]
  - Death [Fatal]

NARRATIVE: CASE EVENT DATE: 201604
